FAERS Safety Report 24590900 (Version 7)
Quarter: 2025Q3

REPORT INFORMATION
  Report Type: Report from Study
  Country: US (occurrence: US)
  Receive Date: 20241107
  Receipt Date: 20250714
  Transmission Date: 20251020
  Serious: Yes (Other)
  Sender: SUNOVION
  Company Number: US-SUMITOMO PHARMA SWITZERLAND GMBH-2024SPA004613

PATIENT

DRUGS (2)
  1. ORGOVYX [Suspect]
     Active Substance: RELUGOLIX
     Indication: Prostate cancer
     Dosage: 120 MG, QD
     Route: 048
     Dates: start: 20241009
  2. ORGOVYX [Suspect]
     Active Substance: RELUGOLIX
     Route: 048

REACTIONS (10)
  - Nephrolithiasis [Unknown]
  - Pollakiuria [Unknown]
  - Dysuria [Recovering/Resolving]
  - Cold sweat [Unknown]
  - Groin pain [Unknown]
  - Chest pain [Unknown]
  - Urinary tract infection [Unknown]
  - Nausea [Unknown]
  - Depressed mood [Unknown]
  - Incorrect dose administered [Unknown]

NARRATIVE: CASE EVENT DATE: 20241001
